FAERS Safety Report 12184817 (Version 3)
Quarter: 2016Q2

REPORT INFORMATION
  Report Type: Spontaneous
  Country: DE (occurrence: DE)
  Receive Date: 20160316
  Receipt Date: 20160426
  Transmission Date: 20160815
  Serious: Yes (Death, Hospitalization, Other)
  Sender: FDA-Public Use
  Company Number: DE-INCYTE CORPORATION-2016IN001339

PATIENT
  Sex: Female

DRUGS (9)
  1. PREDNISOLONE. [Concomitant]
     Active Substance: PREDNISOLONE
     Indication: ARTHRALGIA
     Dosage: 5.0 TO 7.5 MG, QD
     Route: 048
     Dates: start: 20151115, end: 201602
  2. PREDNISOLONE. [Concomitant]
     Active Substance: PREDNISOLONE
     Indication: PYREXIA
  3. EZETIMIBE. [Concomitant]
     Active Substance: EZETIMIBE
     Indication: PRODUCT USED FOR UNKNOWN INDICATION
  4. JAKAFI [Suspect]
     Active Substance: RUXOLITINIB
     Indication: MYELOFIBROSIS
     Dosage: 15 MG, BID
     Route: 048
     Dates: start: 20150708, end: 201602
  5. METOHEXAL [Concomitant]
     Active Substance: METOPROLOL SUCCINATE
     Indication: HYPERTENSION
     Dosage: 95 MG, BID
     Route: 048
  6. ASPIRIN. [Concomitant]
     Active Substance: ASPIRIN
     Indication: PRODUCT USED FOR UNKNOWN INDICATION
  7. CARMEN [Concomitant]
     Active Substance: LERCANIDIPINE
     Indication: PRODUCT USED FOR UNKNOWN INDICATION
  8. NOVODIGAL [Concomitant]
     Active Substance: .BETA.-ACETYLDIGOXIN
     Indication: ATRIAL FIBRILLATION
     Dosage: 1 DF, QD
     Route: 048
  9. L-THYROXIN [Concomitant]
     Active Substance: LEVOTHYROXINE SODIUM
     Indication: PRODUCT USED FOR UNKNOWN INDICATION
     Dosage: 1 DF, QD
     Route: 065

REACTIONS (15)
  - Bacterial sepsis [Fatal]
  - Lymph node tuberculosis [Fatal]
  - Necrobiosis [Unknown]
  - Multiple organ dysfunction syndrome [Fatal]
  - Metastases to the mediastinum [Unknown]
  - Aortic valve incompetence [Unknown]
  - Platelet count increased [Fatal]
  - Soft tissue necrosis [Unknown]
  - Candida infection [Unknown]
  - Leukocytosis [Unknown]
  - Mycobacterial infection [Fatal]
  - Hyperkinetic heart syndrome [Unknown]
  - Metastases to lymph nodes [Unknown]
  - Bacterial disease carrier [Unknown]
  - Diastolic dysfunction [Unknown]

NARRATIVE: CASE EVENT DATE: 201509
